FAERS Safety Report 8543812-5 (Version None)
Quarter: 2012Q3

REPORT INFORMATION
  Report Type: 
  Country: None (occurrence: None)
  Receive Date: 20120727
  Receipt Date: 20120724
  Transmission Date: 20120928
  Serious: Yes (Life-Threatening, Hospitalization)
  Sender: FDA-Public Use
  Company Number: ES-AMGEN-ESPCT2012045919

PATIENT
  Age: 74 Year
  Sex: Male

DRUGS (9)
  1. LEUCOVORIN CALCIUM [Concomitant]
     Indication: COLORECTAL CANCER METASTATIC
     Dosage: 825 MG, Q2WK
     Route: 042
     Dates: start: 20120511
  2. DAFLON [Concomitant]
     Dosage: UNK
     Route: 048
  3. OXALIPLATIN [Concomitant]
     Indication: COLORECTAL CANCER METASTATIC
     Dosage: 175 MG, Q2WK
     Route: 042
     Dates: start: 20120511
  4. PANITUMUMAB [Suspect]
     Indication: COLORECTAL CANCER METASTATIC
     Dosage: UNK UNK, Q2WK
     Route: 042
     Dates: start: 20120511
  5. IBANDRONIC ACID [Concomitant]
     Dosage: UNK
  6. HYDROCHLOROTHIAZIDE [Concomitant]
     Dosage: UNK UNK, BID
     Route: 048
  7. SERC [Concomitant]
     Dosage: 8 MG, QD
     Route: 048
  8. FLUOROURACIL [Concomitant]
     Indication: COLORECTAL CANCER METASTATIC
     Dosage: UNK UNK, Q2WK
     Route: 042
     Dates: start: 20120511
  9. ATORVASTATIN CALCIUM [Concomitant]
     Dosage: 20 MG, QD
     Route: 048

REACTIONS (2)
  - FEBRILE NEUTROPENIA [None]
  - DIARRHOEA [None]
